FAERS Safety Report 5669742-4 (Version None)
Quarter: 2008Q1

REPORT INFORMATION
  Report Type: 
  Country: None (occurrence: None)
  Receive Date: 20080317
  Receipt Date: 20080311
  Transmission Date: 20080703
  Serious: Yes (Other)
  Sender: FDA-Public Use
  Company Number: JP-ASTRAZENECA-2008AP01373

PATIENT
  Age: 25362 Day
  Sex: Male

DRUGS (5)
  1. CRESTOR [Suspect]
     Indication: HYPERLIPIDAEMIA
     Dosage: STOPPED DUE BAD COMPLIANCE
     Route: 048
     Dates: start: 20070730, end: 20080217
  2. CRESTOR [Suspect]
     Route: 048
     Dates: start: 20061102, end: 20070421
  3. PRORENAL [Concomitant]
     Indication: LUMBAR SPINAL STENOSIS
     Dosage: DOSE UNKNOWN
     Route: 048
  4. NEUROTROPIN [Concomitant]
     Indication: LUMBAR SPINAL STENOSIS
     Dosage: DOSE UNKNOWN
     Route: 065
  5. CYANOCOBALAMIN [Concomitant]
     Indication: LUMBAR SPINAL STENOSIS
     Dosage: DOSE UNKNOWN
     Route: 065

REACTIONS (1)
  - HYPERKALAEMIA [None]
